FAERS Safety Report 7731674-5 (Version None)
Quarter: 2011Q3

REPORT INFORMATION
  Report Type: 
  Country: None (occurrence: None)
  Receive Date: 20110906
  Receipt Date: 20110831
  Transmission Date: 20111222
  Serious: Yes (Other)
  Sender: FDA-Public Use
  Company Number: CH-PFIZER INC-2011202972

PATIENT
  Age: 61 Year
  Sex: Female

DRUGS (8)
  1. NEXIUM [Concomitant]
     Dosage: 20 MG, 1X/DAY
  2. EFFEXOR [Interacting]
     Dosage: 150 MG, 1X/DAY
     Route: 048
     Dates: start: 20100924, end: 20100928
  3. INDERAL [Suspect]
     Dosage: 20 MG DAILY (10MG-0-10MG)
     Route: 048
     Dates: end: 20100930
  4. METOCLOPRAMIDE HYDROCHLORIDE [Interacting]
     Dosage: UNK
     Route: 048
     Dates: start: 20100924, end: 20100930
  5. EFFEXOR [Interacting]
     Dosage: 75 MG, 1X/DAY
     Route: 048
     Dates: start: 20100929
  6. FLUTICASONE PROPIONATE [Concomitant]
     Dosage: 500 UG, 2X/DAY
  7. ANXIOLIT [Concomitant]
     Dosage: 52.5 MG DAILY (15 MG-7.5 MG-15 MG-15 MG)
  8. EFFEXOR [Interacting]
     Dosage: 225 MG DAILY (150MG-0-75MG)
     Route: 048
     Dates: end: 20100923

REACTIONS (4)
  - THERAPEUTIC RESPONSE INCREASED [None]
  - DRUG INTERACTION [None]
  - HYPOTENSION [None]
  - ASTHENIA [None]
